FAERS Safety Report 8235045-7 (Version None)
Quarter: 2012Q1

REPORT INFORMATION
  Report Type: 
  Country: None (occurrence: None)
  Receive Date: 20120326
  Receipt Date: 20120319
  Transmission Date: 20120608
  Serious: Yes (Other)
  Sender: FDA-Public Use
  Company Number: US-GLAXOSMITHKLINE-A0970351A

PATIENT
  Age: 39 Year
  Sex: Female

DRUGS (2)
  1. VENTOLIN [Suspect]
     Indication: ASTHMA
     Dosage: 1PUFF THREE TIMES PER DAY
     Route: 055
     Dates: start: 20100101
  2. NO CONCURRENT MEDICATION [Concomitant]

REACTIONS (7)
  - DYSPNOEA [None]
  - ASTHMA [None]
  - ANXIETY [None]
  - PRODUCT QUALITY ISSUE [None]
  - DIZZINESS [None]
  - EMOTIONAL DISTRESS [None]
  - DRUG ADMINISTRATION ERROR [None]
